FAERS Safety Report 15654577 (Version 1)
Quarter: 2018Q4

REPORT INFORMATION
  Report Type: Report from Study
  Country: US (occurrence: US)
  Receive Date: 20181126
  Receipt Date: 20181126
  Transmission Date: 20190205
  Serious: Yes (Other)
  Sender: FDA-Public Use
  Company Number: US-ROCHE-2215463

PATIENT
  Sex: Female

DRUGS (3)
  1. BLINDED ATEZOLIZUMAB [Suspect]
     Active Substance: ATEZOLIZUMAB
     Indication: COLORECTAL CANCER METASTATIC
     Dosage: DURING SECOND TREAMENT CYCLE, LAST DOSE WAS ADMISTERED ON 21/FEB/2018?DURING SIXTH TREAMENT CYCLE, L
     Route: 042
     Dates: start: 20180131
  2. CAPECITABINE. [Suspect]
     Active Substance: CAPECITABINE
     Indication: COLORECTAL CANCER METASTATIC
     Dosage: DURING SECOND TREAMENT CYCLE, LAST DOSE WAS ADMISTERED ON 21/FEB/2018 AT 17500 MG , 2 WEEKS ON 1 WEE
     Route: 048
     Dates: start: 20180131
  3. BEVACIZUMAB. [Suspect]
     Active Substance: BEVACIZUMAB
     Indication: COLORECTAL CANCER METASTATIC
     Dosage: DURING SECOND TREAMENT CYCLE, LAST DOSE WAS ADMISTERED ON 21/FEB/2018 AT 700MG?DURING SIXTH TREAMENT
     Route: 042
     Dates: start: 20180131

REACTIONS (1)
  - Palmar-plantar erythrodysaesthesia syndrome [Unknown]

NARRATIVE: CASE EVENT DATE: 20180226
